FAERS Safety Report 21533999 (Version 1)
Quarter: 2022Q4

REPORT INFORMATION
  Report Type: Spontaneous
  Country: JP (occurrence: JP)
  Receive Date: 20221101
  Receipt Date: 20221101
  Transmission Date: 20230112
  Serious: Yes (Other)
  Sender: FDA-Public Use
  Company Number: JP-PFIZER INC-PV202200087484

PATIENT

DRUGS (1)
  1. SIROLIMUS [Suspect]
     Active Substance: SIROLIMUS
     Dosage: UNK

REACTIONS (6)
  - Cellulitis [Unknown]
  - Stomatitis [Unknown]
  - Acne [Unknown]
  - Diarrhoea [Unknown]
  - Hyperlipidaemia [Unknown]
  - COVID-19 [Unknown]
